FAERS Safety Report 8406749-8 (Version None)
Quarter: 2012Q2

REPORT INFORMATION
  Report Type: 
  Country: None (occurrence: None)
  Receive Date: 20120604
  Receipt Date: 20120530
  Transmission Date: 20120825
  Serious: Yes (Hospitalization)
  Sender: FDA-Public Use
  Company Number: GB-JNJFOC-20120600141

PATIENT
  Sex: Male

DRUGS (2)
  1. NICORETTE [Suspect]
     Indication: PRODUCT USED FOR UNKNOWN INDICATION
     Route: 062
     Dates: start: 20120529
  2. NICORETTE [Suspect]
     Route: 062

REACTIONS (4)
  - SWOLLEN TONGUE [None]
  - CONVULSION [None]
  - TONGUE DISORDER [None]
  - OVERDOSE [None]
